FAERS Safety Report 21177290 (Version 4)
Quarter: 2022Q3

REPORT INFORMATION
  Report Type: Report from Study
  Country: DE (occurrence: DE)
  Receive Date: 20220805
  Receipt Date: 20220819
  Transmission Date: 20221027
  Serious: Yes (Hospitalization, Other)
  Sender: FDA-Public Use
  Company Number: DE-BRISTOL-MYERS SQUIBB COMPANY-2022-082643

PATIENT
  Age: 67 Year
  Sex: Female

DRUGS (11)
  1. NIVOLUMAB [Suspect]
     Active Substance: NIVOLUMAB
     Indication: Squamous cell carcinoma of head and neck
     Route: 042
     Dates: start: 20201127
  2. LEVOTHYROXINE [Concomitant]
     Active Substance: LEVOTHYROXINE
     Indication: Metabolic disorder
     Dosage: PRIOR TO START OF NIVOLUMAB TREATMENT
     Route: 065
     Dates: end: 20210129
  3. FENTANYL [Concomitant]
     Active Substance: FENTANYL
     Indication: Neoplasm
     Dosage: PRIOR TO START OF NIVOLUMAB TREATMENT
     Route: 065
     Dates: end: 20210129
  4. IBUPROFEN [Concomitant]
     Active Substance: IBUPROFEN
     Indication: Neoplasm
     Route: 065
     Dates: start: 20201022
  5. PREGABALIN [Concomitant]
     Active Substance: PREGABALIN
     Indication: Neoplasm
     Route: 065
     Dates: start: 20201122, end: 20210914
  6. PREGABALIN [Concomitant]
     Active Substance: PREGABALIN
     Dates: start: 20210915
  7. PANTOPRAZOLE [Concomitant]
     Active Substance: PANTOPRAZOLE
     Indication: Prophylaxis
     Route: 065
     Dates: start: 20201122
  8. SCHWEDENTABLETTEN [Concomitant]
     Indication: Prophylaxis
     Dosage: PRIOR TO START OF NIVOLUMAB TREATMENT
     Route: 065
     Dates: start: 20201122
  9. MORPHINE SULFATE [Concomitant]
     Active Substance: MORPHINE SULFATE
     Indication: Neoplasm
     Dosage: AS NEEDED
     Route: 065
     Dates: start: 20201127
  10. DEXAMETHASONE [Concomitant]
     Active Substance: DEXAMETHASONE
     Indication: Neoplasm
     Route: 065
     Dates: start: 20210915
  11. CELEBREX [Concomitant]
     Active Substance: CELECOXIB
     Indication: Neoplasm
     Route: 065
     Dates: start: 20210915

REACTIONS (4)
  - Chronic obstructive pulmonary disease [Recovered/Resolved with Sequelae]
  - COVID-19 [Recovered/Resolved]
  - Tongue ulceration [Not Recovered/Not Resolved]
  - Oral candidiasis [Recovered/Resolved]

NARRATIVE: CASE EVENT DATE: 20210121
